FAERS Safety Report 8455899-9 (Version None)
Quarter: 2012Q2

REPORT INFORMATION
  Report Type: 
  Country: None (occurrence: None)
  Receive Date: 20120621
  Receipt Date: 20120611
  Transmission Date: 20120825
  Serious: Yes (Other)
  Sender: FDA-Public Use
  Company Number: JP-PFIZER INC-2012139051

PATIENT
  Age: 82 Year
  Sex: Male

DRUGS (2)
  1. VFEND [Suspect]
     Indication: BRONCHOPULMONARY ASPERGILLOSIS
     Dosage: UNK
     Route: 048
     Dates: start: 20060101
  2. VFEND [Suspect]
     Dosage: UNK
     Route: 048
     Dates: start: 20110101, end: 20111101

REACTIONS (2)
  - SKIN CANCER [None]
  - PHOTOSENSITIVITY REACTION [None]
